FAERS Safety Report 7717707-0 (Version None)
Quarter: 2011Q3

REPORT INFORMATION
  Report Type: 
  Country: None (occurrence: None)
  Receive Date: 20110830
  Receipt Date: 20110825
  Transmission Date: 20111222
  Serious: Yes (Hospitalization, Other)
  Sender: FDA-Public Use
  Company Number: US-AMGEN-USASP2011041536

PATIENT
  Age: 88 Year
  Sex: Male

DRUGS (20)
  1. CALCIUM+VIT D                      /00944201/ [Concomitant]
  2. FLOMAX [Concomitant]
     Dosage: 0.4 MG, UNK
  3. LASIX [Concomitant]
     Dosage: 40 MG, UNK
  4. LIPITOR [Concomitant]
     Dosage: 40 MG, UNK
  5. PROSCAR [Concomitant]
     Dosage: 5 MG, UNK
  6. ATENOLOL [Concomitant]
     Dosage: 15 MG, UNK
  7. HYDROCHLOROTHIAZIDE [Concomitant]
     Dosage: 25 MG, UNK
  8. POTASSIUM CITRATE [Concomitant]
  9. CENTRUM SILVER                     /01292501/ [Concomitant]
  10. ARICEPT [Concomitant]
     Dosage: 5 MG, UNK
  11. ATIVAN [Concomitant]
     Dosage: UNK
  12. SEROQUEL [Concomitant]
     Dosage: 25 MG, UNK
  13. NPLATE [Suspect]
     Indication: IDIOPATHIC THROMBOCYTOPENIC PURPURA
     Dates: start: 20110211
  14. ALPHA LIPOIC ACID [Concomitant]
     Dosage: 600 MG, UNK
  15. DIGOXIN [Concomitant]
     Dosage: 0.125 MG, QD
  16. ISORDIL [Concomitant]
     Dosage: 20 MG, UNK
  17. SYNTHROID [Concomitant]
     Dosage: 150 MUG, UNK
  18. OXYBUTYNIN [Concomitant]
     Dosage: 5 MG, UNK
  19. SENOKOT [Concomitant]
  20. COMBIVENT [Concomitant]

REACTIONS (9)
  - FALL [None]
  - JOINT INJURY [None]
  - PNEUMONIA [None]
  - FLUID OVERLOAD [None]
  - CONTUSION [None]
  - POOR QUALITY SLEEP [None]
  - GENERAL PHYSICAL HEALTH DETERIORATION [None]
  - THROMBOCYTOPENIA [None]
  - ORAL CANDIDIASIS [None]
